FAERS Safety Report 11335412 (Version 1)
Quarter: 2015Q3

REPORT INFORMATION
  Report Type: Report from Study
  Country: FR (occurrence: FR)
  Receive Date: 20150804
  Receipt Date: 20150804
  Transmission Date: 20151125
  Serious: Yes (Hospitalization, Other)
  Sender: FDA-Public Use
  Company Number: FR-ROCHE-1594318

PATIENT
  Sex: Male
  Weight: 68 kg

DRUGS (9)
  1. PLAVIX [Concomitant]
     Active Substance: CLOPIDOGREL BISULFATE
     Indication: CEREBROVASCULAR ACCIDENT
     Route: 048
  2. COBIMETINIB [Suspect]
     Active Substance: COBIMETINIB
     Route: 048
     Dates: start: 20150410
  3. VEMURAFENIB [Suspect]
     Active Substance: VEMURAFENIB
     Dosage: TWICE DAILY (REDUCED DOSE)
     Route: 048
     Dates: start: 20150417, end: 20150429
  4. CRESTOR [Concomitant]
     Active Substance: ROSUVASTATIN CALCIUM
     Indication: DYSLIPIDAEMIA
     Route: 048
  5. COBIMETINIB [Suspect]
     Active Substance: COBIMETINIB
     Indication: METASTATIC MALIGNANT MELANOMA
     Route: 048
     Dates: start: 20150313, end: 20150403
  6. VEMURAFENIB [Suspect]
     Active Substance: VEMURAFENIB
     Indication: METASTATIC MALIGNANT MELANOMA
     Route: 048
     Dates: start: 20150310, end: 20150320
  7. COTAREG [Concomitant]
     Active Substance: HYDROCHLOROTHIAZIDE\VALSARTAN
     Indication: HYPERTENSION
     Dosage: 160/12.5 MG
     Route: 048
  8. LEVOTHYROX [Concomitant]
     Active Substance: LEVOTHYROXINE
     Indication: HYPOTHYROIDISM
     Route: 048
  9. VEMURAFENIB [Suspect]
     Active Substance: VEMURAFENIB
     Dosage: IN THE MORNING AND EVENING.
     Route: 048
     Dates: start: 20150327, end: 20150407

REACTIONS (3)
  - Malignant melanoma [Unknown]
  - Acute kidney injury [Recovered/Resolved]
  - Rhabdomyolysis [Recovered/Resolved]

NARRATIVE: CASE EVENT DATE: 20150320
